FAERS Safety Report 25226982 (Version 6)
Quarter: 2025Q2

REPORT INFORMATION
  Report Type: Spontaneous
  Country: US (occurrence: US)
  Receive Date: 20250422
  Receipt Date: 20250602
  Transmission Date: 20250716
  Serious: No
  Sender: PFIZER
  Company Number: US-PFIZER INC-202500081815

PATIENT
  Age: 13 Year
  Sex: Female

DRUGS (4)
  1. NGENLA [Suspect]
     Active Substance: SOMATROGON-GHLA
     Indication: Hypopituitarism
     Dosage: 25.4 MG SQ WEEKLY (ONCE A WEEK)
     Route: 058
  2. NGENLA [Suspect]
     Active Substance: SOMATROGON-GHLA
     Dosage: 24 MG, WEEKLY
  3. NGENLA [Suspect]
     Active Substance: SOMATROGON-GHLA
     Dates: start: 20250414
  4. NGENLA [Suspect]
     Active Substance: SOMATROGON-GHLA
     Dates: start: 20250415

REACTIONS (4)
  - Injection site pain [Unknown]
  - Circumstance or information capable of leading to device use error [Unknown]
  - Injection site discharge [Unknown]
  - Incorrect dose administered [Unknown]

NARRATIVE: CASE EVENT DATE: 20250414
